FAERS Safety Report 11031297 (Version 2)
Quarter: 2015Q2

REPORT INFORMATION
  Report Type: Spontaneous
  Country: US (occurrence: US)
  Receive Date: 20150415
  Receipt Date: 20150505
  Transmission Date: 20150821
  Serious: Yes (Hospitalization)
  Sender: FDA-Public Use
  Company Number: US-PFIZER INC-2015125102

PATIENT
  Age: 63 Year
  Sex: Male

DRUGS (9)
  1. HYDROCODONE [Suspect]
     Active Substance: HYDROCODONE
     Indication: SPINAL CORD INJURY
  2. OMEPRAZOLE. [Concomitant]
     Active Substance: OMEPRAZOLE
     Indication: GASTROOESOPHAGEAL REFLUX DISEASE
     Dosage: 40 MG, 2X/DAY (ONE IN MORNING AND ONE IN NIGHT)
     Route: 048
  3. LYRICA [Suspect]
     Active Substance: PREGABALIN
     Indication: INTERVERTEBRAL DISC DEGENERATION
  4. HYDROCODONE [Suspect]
     Active Substance: HYDROCODONE
     Indication: NEURALGIA
     Dosage: 7.5 MG, 3X/DAY
     Dates: end: 201501
  5. LIDOCAINE. [Concomitant]
     Active Substance: LIDOCAINE
     Indication: BARRETT^S OESOPHAGUS
     Dosage: 5 ML, UNK
  6. LYRICA [Suspect]
     Active Substance: PREGABALIN
     Indication: BACK INJURY
     Dosage: 75 MG, 3X/DAY
     Route: 048
     Dates: start: 20150318
  7. LISINOPRIL. [Concomitant]
     Active Substance: LISINOPRIL
     Indication: HYPERTENSION
     Dosage: 40 MG, 2X/DAY (ONE IN MORNING AND ONE IN NIGHT)
     Route: 048
  8. CYCLOBENZAPRINE [Suspect]
     Active Substance: CYCLOBENZAPRINE
     Indication: MUSCLE RELAXANT THERAPY
     Dosage: 10 MG, 3X/DAY
     Route: 048
  9. CYCLOBENZAPRINE [Suspect]
     Active Substance: CYCLOBENZAPRINE
     Indication: MUSCLE TIGHTNESS

REACTIONS (6)
  - Pre-existing condition improved [Recovered/Resolved]
  - Tongue dry [Unknown]
  - Back pain [Unknown]
  - Therapeutic response unexpected [Recovered/Resolved]
  - Dry mouth [Not Recovered/Not Resolved]
  - Pain in extremity [Unknown]

NARRATIVE: CASE EVENT DATE: 20150318
